FAERS Safety Report 10322055 (Version 2)
Quarter: 2015Q1

REPORT INFORMATION
  Report Type: Other
  Country: US (occurrence: US)
  Receive Date: 20140720
  Receipt Date: 20150323
  Transmission Date: 20150720
  Serious: Yes (Hospitalization, Other)
  Sender: FDA-Public Use
  Company Number: US-GSKPPD-2014GSK035342

PATIENT
  Age: 66 Year
  Sex: Male

DRUGS (8)
  1. AVANDAMET [Suspect]
     Active Substance: METFORMIN HYDROCHLORIDE\ROSIGLITAZONE MALEATE
     Indication: DIABETES MELLITUS
     Dosage: 4/500MG DAILY ?DATES OF AVANDAMET USE COULD NOT BE CONFIRMED IN RECORDS REVIEWED
     Route: 048
  2. CLONIDINE. [Concomitant]
     Active Substance: CLONIDINE
     Route: 048
  3. WARFARIN [Concomitant]
     Active Substance: WARFARIN
  4. AVANDIA [Suspect]
     Active Substance: ROSIGLITAZONE MALEATE
     Indication: DIABETES MELLITUS
     Dosage: DATES OF AVANDIA USE COULD NOT BE CONFIRMED IN RECORDS REVIEWED
     Route: 048
  5. ENALAPRIL [Concomitant]
     Active Substance: ENALAPRIL
  6. ASPIRIN. [Concomitant]
     Active Substance: ASPIRIN
  7. ISOSORBIDE MONONITRATE. [Concomitant]
     Active Substance: ISOSORBIDE MONONITRATE
  8. DIGOXIN. [Concomitant]
     Active Substance: DIGOXIN

REACTIONS (1)
  - Cardiac failure congestive [Recovered/Resolved]

NARRATIVE: CASE EVENT DATE: 20050409
